FAERS Safety Report 22054279 (Version 2)
Quarter: 2023Q4

REPORT INFORMATION
  Report Type: Report from Study
  Country: US (occurrence: US)
  Receive Date: 20230302
  Receipt Date: 20231017
  Transmission Date: 20240110
  Serious: Yes (Hospitalization, Other)
  Sender: FDA-Public Use
  Company Number: US-MYLANLABS-2023M1021432

PATIENT
  Age: 56 Year
  Sex: Female
  Weight: 44.2 kg

DRUGS (35)
  1. GABAPENTIN [Suspect]
     Active Substance: GABAPENTIN
     Indication: Infusion site pain
     Dosage: UNK
     Route: 065
  2. REMODULIN [Suspect]
     Active Substance: TREPROSTINIL
     Indication: Pulmonary arterial hypertension
     Dosage: 0.043 MICROGRAM/KILOGRAM
     Route: 058
  3. REMODULIN [Suspect]
     Active Substance: TREPROSTINIL
     Dosage: 0.046 MICROGRAM/KILOGRAM
     Route: 058
  4. REMODULIN [Suspect]
     Active Substance: TREPROSTINIL
     Dosage: UNK (DOSE INCREASED, START DATE: 07-JAN-2023)
     Route: 058
  5. REMODULIN [Suspect]
     Active Substance: TREPROSTINIL
     Dosage: 0.049 MICROGRAM/KILOGRAM (START DATE: JAN 2023)
     Route: 058
  6. REMODULIN [Suspect]
     Active Substance: TREPROSTINIL
     Dosage: UNK
     Route: 058
     Dates: start: 20210908
  7. REMODULIN [Suspect]
     Active Substance: TREPROSTINIL
     Indication: Pulmonary arterial hypertension
     Dosage: 0.08 MICROGRAM/KILOGRAM
     Route: 058
     Dates: start: 20210908
  8. POTASSIUM [Suspect]
     Active Substance: POTASSIUM
     Indication: Product used for unknown indication
     Dosage: UNK
     Route: 065
  9. VANCOMYCIN [Suspect]
     Active Substance: VANCOMYCIN
     Indication: Diarrhoea
     Dosage: UNK, START DATE: 2022
     Route: 065
     Dates: end: 202212
  10. CHLORPHENIRAMINE [Suspect]
     Active Substance: CHLORPHENIRAMINE
     Indication: Product used for unknown indication
     Dosage: UNK, START DATE: 2022
     Route: 065
     Dates: end: 202212
  11. DIAZEPAM [Suspect]
     Active Substance: DIAZEPAM
     Indication: Product used for unknown indication
     Dosage: UNK
     Route: 065
  12. IBUPROFEN [Suspect]
     Active Substance: IBUPROFEN
     Indication: Infusion site pain
     Dosage: UNK
     Route: 065
  13. PEPCID [Suspect]
     Active Substance: FAMOTIDINE
     Indication: Product used for unknown indication
     Dosage: UNK
     Route: 065
  14. OPSUMIT [Concomitant]
     Active Substance: MACITENTAN
     Dosage: UNK
     Route: 065
  15. AMITRIPTYLINE HYDROCHLORIDE [Concomitant]
     Active Substance: AMITRIPTYLINE HYDROCHLORIDE
     Dosage: UNK
     Route: 065
  16. LECITHIN [Concomitant]
     Active Substance: LECITHIN
     Dosage: UNK
     Route: 065
  17. SODIUM CHLORIDE [Concomitant]
     Active Substance: SODIUM CHLORIDE
     Dosage: UNK
     Route: 065
  18. IBUPROFEN [Concomitant]
     Active Substance: IBUPROFEN
     Dosage: UNK
     Route: 065
  19. KETAMINE HYDROCHLORIDE [Concomitant]
     Active Substance: KETAMINE HYDROCHLORIDE
     Dosage: UNK
     Route: 065
  20. LIDOCAINE HYDROCHLORIDE [Concomitant]
     Active Substance: LIDOCAINE HYDROCHLORIDE
     Dosage: UNK (ALOE LIDOCAINE GEL)
     Route: 065
  21. LORATADINE [Concomitant]
     Active Substance: LORATADINE
     Dosage: UNK
     Route: 065
  22. POLOXAMER [Concomitant]
     Active Substance: POLOXAMER
     Dosage: UNK
     Route: 065
  23. CLONIDINE [Concomitant]
     Active Substance: CLONIDINE
     Dosage: UNK
     Route: 065
  24. KETOPROFEN [Concomitant]
     Active Substance: KETOPROFEN
     Dosage: UNK
     Route: 065
  25. VITAMIN D3 [Concomitant]
     Active Substance: CHOLECALCIFEROL
     Dosage: UNK
     Route: 065
  26. SPIRONOLACTONE AND HYDROCHLOROTHIAZIDE [Concomitant]
     Active Substance: HYDROCHLOROTHIAZIDE\SPIRONOLACTONE
     Dosage: UNK
     Route: 065
  27. CARBIDOPA LEVODOPA [Concomitant]
     Active Substance: CARBIDOPA\LEVODOPA
     Dosage: UNK
     Route: 065
  28. DIAZEPAM [Concomitant]
     Active Substance: DIAZEPAM
     Dosage: UNK
     Route: 065
  29. VITAMIN C [Concomitant]
     Active Substance: ASCORBIC ACID
     Dosage: UNK
     Route: 065
  30. TYLENOL [Concomitant]
     Active Substance: ACETAMINOPHEN
     Dosage: UNK
     Route: 065
  31. GAVISCON CHEWABLE [Concomitant]
     Dosage: UNK
     Route: 065
  32. ARNICA TINCTURE [Concomitant]
     Dosage: UNK
     Route: 065
  33. TORSEMIDE [Concomitant]
     Active Substance: TORSEMIDE
     Dosage: UNK
     Route: 065
  34. OXYGEN [Concomitant]
     Active Substance: OXYGEN
     Dosage: UNK
     Route: 065
  35. ALOE [Concomitant]
     Active Substance: ALOE
     Dosage: UNK
     Route: 065

REACTIONS (41)
  - Pulmonary arterial hypertension [Unknown]
  - Abdominal pain [Unknown]
  - Clostridium difficile infection [Not Recovered/Not Resolved]
  - Ascites [Unknown]
  - Liver disorder [Unknown]
  - Spleen disorder [Unknown]
  - Limb discomfort [Unknown]
  - Nerve compression [Unknown]
  - Decreased appetite [Unknown]
  - Chest discomfort [Recovering/Resolving]
  - Illness [Recovering/Resolving]
  - Throat tightness [Recovering/Resolving]
  - Feeling hot [Unknown]
  - Weight decreased [Unknown]
  - Flushing [Unknown]
  - Retching [Unknown]
  - Neck pain [Unknown]
  - Grip strength decreased [Unknown]
  - Fine motor skill dysfunction [Unknown]
  - Pain in extremity [Unknown]
  - Diarrhoea [Not Recovered/Not Resolved]
  - Blood sodium increased [Unknown]
  - Diaphragmalgia [Unknown]
  - Infusion site pruritus [Not Recovered/Not Resolved]
  - Infusion site pain [Unknown]
  - Environmental exposure [Unknown]
  - Photosensitivity reaction [Unknown]
  - Infusion site bruising [Unknown]
  - Infusion site discolouration [Unknown]
  - Infusion site rash [Unknown]
  - Fatigue [Unknown]
  - Cough [Unknown]
  - Dyspnoea [Not Recovered/Not Resolved]
  - Dizziness [Unknown]
  - Dry mouth [Not Recovered/Not Resolved]
  - Asthenia [Unknown]
  - Somnolence [Unknown]
  - Feeling abnormal [Not Recovered/Not Resolved]
  - Hyperhidrosis [Unknown]
  - Infection [Recovering/Resolving]
  - Vomiting [Unknown]

NARRATIVE: CASE EVENT DATE: 20221228
